FAERS Safety Report 11634744 (Version 1)
Quarter: 2015Q4

REPORT INFORMATION
  Report Type: Spontaneous
  Country: US (occurrence: US)
  Receive Date: 20151015
  Receipt Date: 20151015
  Transmission Date: 20160304
  Serious: No
  Sender: FDA-Public Use
  Company Number: US-INDIVIOR-RB-075696-2015

PATIENT
  Age: 50 Year
  Sex: Female

DRUGS (2)
  1. SUBOXONE [Suspect]
     Active Substance: BUPRENORPHINE HYDROCHLORIDE\NALOXONE HYDROCHLORIDE
     Indication: DRUG DEPENDENCE
     Dosage: 8 MG, TID (ABOUT 6 WEEKS)
     Route: 060
     Dates: start: 201412, end: 201501
  2. SUBOXONE [Suspect]
     Active Substance: BUPRENORPHINE HYDROCHLORIDE\NALOXONE HYDROCHLORIDE
     Dosage: TAKING LESS THAN PRESCRIBED (1-2 WEEKS)
     Route: 060
     Dates: start: 201501, end: 20150202

REACTIONS (8)
  - Drug prescribing error [Recovered/Resolved]
  - Road traffic accident [Recovered/Resolved]
  - Feeling abnormal [Recovering/Resolving]
  - Myalgia [Unknown]
  - Anxiety [Not Recovered/Not Resolved]
  - Drug withdrawal syndrome [Recovering/Resolving]
  - Product preparation error [Recovered/Resolved]
  - Intentional underdose [Recovered/Resolved]

NARRATIVE: CASE EVENT DATE: 201412
